FAERS Safety Report 7862966-7 (Version None)
Quarter: 2011Q4

REPORT INFORMATION
  Report Type: 
  Country: None (occurrence: None)
  Receive Date: 20111027
  Receipt Date: 20101122
  Transmission Date: 20120403
  Serious: No
  Sender: FDA-Public Use
  Company Number: US-AMGEN-US196816

PATIENT
  Age: 41 Year
  Sex: Male

DRUGS (3)
  1. ENBREL [Suspect]
     Dates: start: 20060414, end: 20090901
  2. METHOTREXATE [Concomitant]
     Dosage: UNK UNK, UNK
  3. ENBREL [Suspect]
     Indication: RHEUMATOID ARTHRITIS
     Dosage: 50 MG, QWK
     Route: 058
     Dates: start: 20060414

REACTIONS (5)
  - INJECTION SITE SWELLING [None]
  - JOINT DESTRUCTION [None]
  - LYMPHADENOPATHY [None]
  - INJECTION SITE ERYTHEMA [None]
  - ARTHRALGIA [None]
